FAERS Safety Report 10230022 (Version 1)
Quarter: 2014Q2

REPORT INFORMATION
  Report Type: Spontaneous
  Country: US (occurrence: US)
  Receive Date: 20140611
  Receipt Date: 20140611
  Transmission Date: 20141212
  Serious: Yes (Hospitalization)
  Sender: FDA-Public Use
  Company Number: US-TARO PHARMACEUTICALS U.S.A., INC-2014SUN01256

PATIENT
  Age: 27 Year
  Sex: Female

DRUGS (5)
  1. WARFARIN [Suspect]
     Indication: SUICIDE ATTEMPT
     Dosage: 60 TABLETS
     Route: 065
  2. NORTRIPTYLINE HYDROCHLORIDE [Suspect]
     Indication: PRODUCT USED FOR UNKNOWN INDICATION
  3. OXYCODONE/ACETAMINOPHEN [Suspect]
     Indication: PRODUCT USED FOR UNKNOWN INDICATION
     Route: 065
  4. IBUPROFEN [Suspect]
     Indication: PRODUCT USED FOR UNKNOWN INDICATION
     Route: 065
  5. NAPROXEN [Suspect]
     Indication: PRODUCT USED FOR UNKNOWN INDICATION

REACTIONS (7)
  - Sedation [Unknown]
  - Miosis [Unknown]
  - Gastrointestinal sounds abnormal [Unknown]
  - Suicide attempt [Unknown]
  - Tachycardia [Unknown]
  - International normalised ratio increased [Recovering/Resolving]
  - Intentional overdose [Unknown]
